FAERS Safety Report 5170152-7 (Version None)
Quarter: 2006Q4

REPORT INFORMATION
  Report Type: 
  Country: None (occurrence: None)
  Receive Date: 20061204
  Receipt Date: 20061124
  Transmission Date: 20070319
  Serious: Yes (Other)
  Sender: FDA-Public Use
  Company Number: 6025742F

PATIENT
  Age: 69 Year
  Sex: Male

DRUGS (1)
  1. NIASPAN [Suspect]
     Indication: HYPERTRIGLYCERIDAEMIA
     Dosage: 500 MG QD PO
     Route: 048
     Dates: start: 20060802, end: 20060804

REACTIONS (2)
  - CONFUSIONAL STATE [None]
  - HALLUCINATION, VISUAL [None]
